FAERS Safety Report 9817523 (Version 1)
Quarter: 2014Q1

REPORT INFORMATION
  Report Type: Spontaneous
  Country: BR (occurrence: BR)
  Receive Date: 20140115
  Receipt Date: 20140115
  Transmission Date: 20141002
  Serious: Yes (Other)
  Sender: FDA-Public Use
  Company Number: BR-AMGEN-BRASP2014001923

PATIENT
  Age: 57 Year
  Sex: Female
  Weight: 71 kg

DRUGS (17)
  1. ENBREL [Suspect]
     Indication: RHEUMATOID ARTHRITIS
     Dosage: 50 MG, ONCE WEEKLY
     Route: 065
  2. ENBREL [Suspect]
     Dosage: 50 MG, QWK
     Route: 058
     Dates: start: 201107
  3. METHYLDOPA [Concomitant]
     Dosage: UNK
  4. METFORMIN [Concomitant]
     Dosage: UNK
  5. DOLOMITA [Concomitant]
     Dosage: UNK
  6. VITAMIN B12                        /00056201/ [Concomitant]
     Dosage: UNK
  7. PREDNISONE [Concomitant]
     Dosage: UNK
  8. METHOTREXATE [Concomitant]
     Dosage: UNK
  9. GABAPENTIN [Concomitant]
     Dosage: UNK
  10. ENDOFOLIN [Concomitant]
     Dosage: UNK
  11. CONDROFLEX [Concomitant]
     Dosage: 1 SACHET, UNSPECIFIED FREQUENCY
  12. VITAMIN D                          /00107901/ [Concomitant]
     Dosage: UNK
  13. TYLEX                              /00116401/ [Concomitant]
     Dosage: UNK
  14. ULTRACET [Concomitant]
     Dosage: UNK
  15. RANITIDINE [Concomitant]
     Dosage: UNK
  16. PANTOPRAZOLE [Concomitant]
     Dosage: UNK
  17. DOLAMIN                            /00729302/ [Concomitant]
     Dosage: UNK

REACTIONS (3)
  - Sciatic nerve injury [Recovering/Resolving]
  - Injection site pain [Unknown]
  - Injection site warmth [Unknown]
